FAERS Safety Report 8225070-4 (Version None)
Quarter: 2012Q1

REPORT INFORMATION
  Report Type: 
  Country: None (occurrence: None)
  Receive Date: 20120321
  Receipt Date: 20120308
  Transmission Date: 20120608
  Serious: Yes (Hospitalization)
  Sender: FDA-Public Use
  Company Number: FR-ROCHE-690384

PATIENT
  Sex: Male
  Weight: 23.65 kg

DRUGS (8)
  1. IFOSFAMIDE [Suspect]
     Indication: SARCOMA METASTATIC
     Dosage: LAST DOSE PRIOR TO SAE: 28 FEBRUARY 2010. DOSAGE FORM: 6G/M2
     Route: 042
  2. AVASTIN [Suspect]
     Dosage: LAST DOSE PRIOR TO SAE 22/03/2010
     Route: 042
     Dates: start: 20100322
  3. DOXORUBICIN HYDROCHLORIDE [Suspect]
     Indication: SARCOMA METASTATIC
     Dosage: LAST DOSE PRIOR TO SAE: 28 FEBRUARY 2010. DOSAGE FORM: 60MG/M2
     Route: 042
  4. AVASTIN [Suspect]
     Indication: SARCOMA METASTATIC
     Dosage: DATE OF LAST DOSE PRIOR TO SAE: 27FEB2010
     Route: 042
     Dates: start: 20100227
  5. DACTINOMYCIN [Suspect]
     Indication: SARCOMA METASTATIC
     Dosage: LAST DOSE PRIOR TO SAE: 27 FEBRUARY 2010. DOSAGE FORM: 1.5 MG/M2,  DRUG: ACYINOMYCIN D.
     Route: 042
  6. VINCRISTINE [Suspect]
     Indication: SARCOMA METASTATIC
     Dosage: LAST DOSE PRIOR TO SAE: 27 FEBRUARY 2010. DOSAGE FORM: 1.5MG/M2
     Route: 042
  7. DACTINOMYCIN [Suspect]
     Dosage: LAST DOSE PRIOR TO SAE 22/03/2010
     Route: 042
  8. DOXORUBICIN HYDROCHLORIDE [Suspect]
     Dosage: LAST DOSE PRIOR TO SAE 23/03/2010
     Route: 042

REACTIONS (2)
  - FEBRILE BONE MARROW APLASIA [None]
  - TUMOUR NECROSIS [None]
